FAERS Safety Report 9238857 (Version 1)
Quarter: 2013Q2

REPORT INFORMATION
  Report Type: Spontaneous
  Country: US (occurrence: None)
  Receive Date: 20130417
  Receipt Date: 20130417
  Transmission Date: 20140414
  Serious: No
  Sender: FDA-Public Use
  Company Number: None

PATIENT
  Age: 76 Year
  Sex: 0
  Weight: 81.8 kg

DRUGS (2)
  1. PREDNISOLONE ACETATE [Suspect]
     Indication: POSTOPERATIVE CARE
     Dates: start: 20130401
  2. VIGAMOX [Concomitant]

REACTIONS (4)
  - Visual impairment [None]
  - Product deposit [None]
  - Product quality issue [None]
  - Eye infection [None]
